FAERS Safety Report 6035722-2 (Version None)
Quarter: 2009Q1

REPORT INFORMATION
  Report Type: 
  Country: None (occurrence: None)
  Receive Date: 20090113
  Receipt Date: 20090102
  Transmission Date: 20090719
  Serious: Yes (Hospitalization, Other)
  Sender: FDA-Public Use
  Company Number: PHHO2007MX09202

PATIENT
  Sex: Male

DRUGS (3)
  1. DIOVAN HCT [Suspect]
     Indication: HYPERTENSION
     Dosage: 160 MG VALSARTAN/25 MG HYDROCHLOROTHIAZIDE PER DAY
     Route: 048
     Dates: start: 20070401
  2. GLYBURIDE AND METFORMIN HCL [Concomitant]
     Indication: DIABETES MELLITUS
  3. BUTAZOLIDIN [Concomitant]
     Indication: PAIN

REACTIONS (4)
  - CEREBRAL THROMBOSIS [None]
  - CONJUNCTIVAL HAEMORRHAGE [None]
  - EYE HAEMORRHAGE [None]
  - EYE OPERATION [None]
